FAERS Safety Report 7435136-4 (Version None)
Quarter: 2011Q2

REPORT INFORMATION
  Report Type: 
  Country: None (occurrence: None)
  Receive Date: 20110418
  Receipt Date: 20110405
  Transmission Date: 20111010
  Serious: Yes (Life-Threatening)
  Sender: FDA-Public Use
  Company Number: 1000020120

PATIENT
  Age: 67 Year
  Sex: Female

DRUGS (9)
  1. LORAZEPAM [Suspect]
     Indication: MAJOR DEPRESSION
     Dosage: 7.5 MG (7.5 MG,1 IN 1 D),ORAL
     Route: 048
     Dates: start: 20110218, end: 20110225
  2. LAMICTAL [Suspect]
     Indication: MAJOR DEPRESSION
     Dosage: 150 MG (150 MG,1 IN 1 D),ORAL
     Route: 048
     Dates: start: 20100101, end: 20110225
  3. LASIX [Concomitant]
  4. PRITORPLUS (HYDROCHLOROTHIAZIDE) (HYDROCHLOROTHIAZIDE) [Concomitant]
  5. ESCITALOPRAM OXALATE [Suspect]
     Indication: MAJOR DEPRESSION
     Dosage: 5 GTT (5 GTT,1 IN 1 D),ORAL
     Route: 048
     Dates: start: 20100101, end: 20110225
  6. TENORMIN [Concomitant]
  7. DELTACORTENE (PREDNISONE) (PREDNISONE) [Concomitant]
  8. SERETIDE DISKUS (FLUTICASONE) (FLUTICASONE) [Concomitant]
  9. CARDIAZOL-PARACODINA (DIHYDROCDOEINE, PENTETRAZOL) (DIHYDROCODEINE, PE [Concomitant]

REACTIONS (1)
  - INAPPROPRIATE ANTIDIURETIC HORMONE SECRETION [None]
